FAERS Safety Report 24067578 (Version 5)
Quarter: 2024Q4

REPORT INFORMATION
  Report Type: Spontaneous
  Country: EC (occurrence: EC)
  Receive Date: 20240710
  Receipt Date: 20241121
  Transmission Date: 20250115
  Serious: Yes (Death, Hospitalization, Other)
  Sender: BOEHRINGER INGELHEIM
  Company Number: EC-BoehringerIngelheim-2024-BI-038720

PATIENT
  Age: 44 Year
  Sex: Female
  Weight: 76.3 kg

DRUGS (3)
  1. JARDIANCE [Suspect]
     Active Substance: EMPAGLIFLOZIN
     Indication: Insulin resistance
     Route: 048
     Dates: start: 202307
  2. HYDROCHLOROTHIAZIDE\TELMISARTAN [Concomitant]
     Active Substance: HYDROCHLOROTHIAZIDE\TELMISARTAN
     Indication: Product used for unknown indication
     Dates: start: 2023
  3. CONCOR AM [Concomitant]
     Indication: Product used for unknown indication
     Dates: start: 2023

REACTIONS (5)
  - Acute respiratory failure [Fatal]
  - Systemic lupus erythematosus [Recovering/Resolving]
  - Lupus nephritis [Recovering/Resolving]
  - Varicella [Not Recovered/Not Resolved]
  - Off label use [Not Recovered/Not Resolved]

NARRATIVE: CASE EVENT DATE: 20230701
